FAERS Safety Report 25607863 (Version 1)
Quarter: 2025Q3

REPORT INFORMATION
  Report Type: Spontaneous
  Country: BR (occurrence: BR)
  Receive Date: 20250725
  Receipt Date: 20250725
  Transmission Date: 20251020
  Serious: Yes (Death, Hospitalization, Other)
  Sender: AMGEN
  Company Number: BR-AMGEN-BRASP2025141820

PATIENT
  Age: 68 Year
  Sex: Female

DRUGS (1)
  1. XGEVA [Suspect]
     Active Substance: DENOSUMAB
     Indication: Metastases to bone
     Dosage: 120 MILLIGRAM, QMO (1 AMPULE)
     Route: 058
     Dates: start: 202209, end: 202309

REACTIONS (3)
  - Papillary thyroid cancer [Fatal]
  - Metastases to pancreas [Fatal]
  - Metastases to liver [Fatal]

NARRATIVE: CASE EVENT DATE: 20240101
